FAERS Safety Report 19904441 (Version 1)
Quarter: 2021Q3

REPORT INFORMATION
  Report Type: Spontaneous
  Country: NL (occurrence: NL)
  Receive Date: 20210930
  Receipt Date: 20210930
  Transmission Date: 20211014
  Serious: Yes (Death, Hospitalization, Other)
  Sender: FDA-Public Use
  Company Number: NL-SA-2021SA320736

PATIENT
  Age: 10 Year
  Sex: Female

DRUGS (9)
  1. ISONIAZID. [Suspect]
     Active Substance: ISONIAZID
     Indication: TUBERCULOSIS
     Dosage: 10 MG/KG, QD
     Dates: start: 1984, end: 1984
  2. RIFAMPICIN [Suspect]
     Active Substance: RIFAMPIN
     Indication: TUBERCULOSIS
     Dosage: 15 MG/KG, QD
     Dates: start: 1984, end: 1984
  3. KANAMYCIN [Concomitant]
     Active Substance: KANAMYCIN A SULFATE
     Indication: TUBERCULOSIS
     Dosage: 15 MG/KG, QD
     Route: 030
     Dates: start: 1984, end: 1984
  4. RIFAMPICIN [Suspect]
     Active Substance: RIFAMPIN
     Dosage: 10 MG/KG, QD
     Dates: start: 1984
  5. ETHAMBUTOL [Suspect]
     Active Substance: ETHAMBUTOL HYDROCHLORIDE
     Dosage: UNK
     Dates: start: 1984, end: 1984
  6. PYRAZINAMIDE. [Suspect]
     Active Substance: PYRAZINAMIDE
     Dosage: INCREASED TO 35 MG/KG PER DAY
     Route: 048
     Dates: start: 1984, end: 1984
  7. RIFAMPICIN [Suspect]
     Active Substance: RIFAMPIN
     Dosage: LOW AND SLOWLY INCREASED DOSAGE
     Dates: start: 1984, end: 1984
  8. ETHAMBUTOL [Suspect]
     Active Substance: ETHAMBUTOL HYDROCHLORIDE
     Indication: TUBERCULOSIS
     Dosage: 15 MG/KG, QD
     Dates: start: 1984, end: 1984
  9. PYRAZINAMIDE. [Suspect]
     Active Substance: PYRAZINAMIDE
     Indication: TUBERCULOSIS
     Dosage: STARTED AT LOW DOSE  AND INCREASED TO 35 MG/KG PER DAY
     Route: 048

REACTIONS (14)
  - Gastrointestinal disorder [Fatal]
  - Coma hepatic [Fatal]
  - Respiratory failure [Fatal]
  - Pruritus [Fatal]
  - Dermatitis [Fatal]
  - Abdominal pain [Fatal]
  - Erythema [Fatal]
  - Pyrexia [Unknown]
  - Hepatitis fulminant [Fatal]
  - Eosinophilia [Fatal]
  - Shock [Fatal]
  - Upper respiratory tract infection [Unknown]
  - Headache [Fatal]
  - Hepatic enzyme increased [Fatal]

NARRATIVE: CASE EVENT DATE: 1984
